FAERS Safety Report 21453339 (Version 1)
Quarter: 2022Q4

REPORT INFORMATION
  Report Type: Spontaneous
  Country: ID (occurrence: ID)
  Receive Date: 20221013
  Receipt Date: 20221013
  Transmission Date: 20230113
  Serious: Yes (Death)
  Sender: FDA-Public Use
  Company Number: IQ-BAYER-2022A142207

PATIENT
  Age: 55 Year
  Sex: Male

DRUGS (2)
  1. NEXAVAR [Suspect]
     Active Substance: SORAFENIB
     Indication: Hepatocellular carcinoma
     Dosage: 400 MG DAILY
     Route: 048
     Dates: start: 20220918
  2. CIPROFLOXACIN HYDROCHLORIDE [Concomitant]
     Active Substance: CIPROFLOXACIN HYDROCHLORIDE
     Indication: Urinary tract infection
     Dosage: 500 MG DAILY
     Route: 048
     Dates: start: 20120512, end: 20120517

REACTIONS (2)
  - Hepatocellular carcinoma [Fatal]
  - Off label use [None]

NARRATIVE: CASE EVENT DATE: 20220918
